FAERS Safety Report 15730010 (Version 1)
Quarter: 2018Q4

REPORT INFORMATION
  Report Type: Spontaneous
  Country: DE (occurrence: DE)
  Receive Date: 20181217
  Receipt Date: 20181217
  Transmission Date: 20190205
  Serious: Yes (Other)
  Sender: FDA-Public Use
  Company Number: DE-JNJFOC-20181216819

PATIENT
  Age: 75 Year
  Sex: Male

DRUGS (1)
  1. XARELTO [Suspect]
     Active Substance: RIVAROXABAN
     Indication: ATRIAL FIBRILLATION
     Route: 048
     Dates: start: 201710

REACTIONS (7)
  - Arrhythmia [Unknown]
  - Infrequent bowel movements [Unknown]
  - Flatulence [Recovering/Resolving]
  - Gait disturbance [Recovered/Resolved]
  - Abdominal discomfort [Recovering/Resolving]
  - Asthenia [Unknown]
  - Pain in extremity [Recovered/Resolved]

NARRATIVE: CASE EVENT DATE: 2017
